FAERS Safety Report 17481500 (Version 2)
Quarter: 2022Q1

REPORT INFORMATION
  Report Type: Spontaneous
  Country: US (occurrence: US)
  Receive Date: 20200302
  Receipt Date: 20220222
  Transmission Date: 20220423
  Serious: Yes (Other)
  Sender: FDA-Public Use
  Company Number: US-ALLERGAN-1912040US

PATIENT
  Age: 85 Year
  Sex: Female

DRUGS (3)
  1. OZURDEX [Suspect]
     Active Substance: DEXAMETHASONE
     Indication: Retinal vein occlusion
     Dosage: 0.7 MG, SINGLE
     Route: 031
     Dates: start: 20170531, end: 20170531
  2. OZURDEX [Suspect]
     Active Substance: DEXAMETHASONE
     Indication: Retinal oedema
  3. UNSPECIFIED INGREDIENT [Concomitant]
     Active Substance: UNSPECIFIED INGREDIENT
     Indication: Diabetes mellitus
     Dosage: UNK
     Route: 048

REACTIONS (7)
  - Endophthalmitis [Unknown]
  - Blindness [Recovered/Resolved]
  - Recalled product administered [Unknown]
  - Visual impairment [Unknown]
  - Eye inflammation [Recovered/Resolved]
  - Intraocular pressure increased [Recovered/Resolved]
  - Eye pain [Recovered/Resolved]

NARRATIVE: CASE EVENT DATE: 20170605
